FAERS Safety Report 6721598-4 (Version None)
Quarter: 2010Q2

REPORT INFORMATION
  Report Type: 
  Country: None (occurrence: None)
  Receive Date: 20100512
  Receipt Date: 20100429
  Transmission Date: 20101027
  Serious: Yes (Other)
  Sender: FDA-Public Use
  Company Number: PHHY2009CA38771

PATIENT
  Sex: Male

DRUGS (8)
  1. CLOZARIL [Suspect]
     Indication: SCHIZOPHRENIA
     Dosage: 100 MG DAILY
     Route: 048
     Dates: start: 20090427
  2. CLOZARIL [Suspect]
     Dosage: UNK
     Route: 048
     Dates: start: 20090501, end: 20090907
  3. CLOZARIL [Suspect]
     Dosage: UNK
  4. DIVALPROEX SODIUM [Concomitant]
  5. QUETIAPINE [Concomitant]
  6. CARVEDILOL [Concomitant]
     Dosage: 6.25 MG, BID
  7. RAMIPRIL [Concomitant]
     Dosage: 7.5 MG DAILY
  8. RISPERIDONE [Concomitant]

REACTIONS (6)
  - CARDIOMYOPATHY [None]
  - LEFT VENTRICULAR DYSFUNCTION [None]
  - MITRAL VALVE INCOMPETENCE [None]
  - PULMONARY VALVE INCOMPETENCE [None]
  - SINUS BRADYCARDIA [None]
  - TRICUSPID VALVE INCOMPETENCE [None]
